FAERS Safety Report 25755065 (Version 1)
Quarter: 2025Q3

REPORT INFORMATION
  Report Type: Spontaneous
  Country: US (occurrence: US)
  Receive Date: 20250903
  Receipt Date: 20250903
  Transmission Date: 20251020
  Serious: No
  Sender: TOLMAR
  Company Number: US-Tolmar-TLM-2025-05411

PATIENT
  Sex: Male

DRUGS (1)
  1. JATENZO [Suspect]
     Active Substance: TESTOSTERONE UNDECANOATE
     Indication: Product used for unknown indication

REACTIONS (1)
  - Lymphadenopathy [Unknown]
